FAERS Safety Report 4726511-7 (Version None)
Quarter: 2005Q3

REPORT INFORMATION
  Report Type: 
  Country: None (occurrence: None)
  Receive Date: 20050725
  Receipt Date: 20050310
  Transmission Date: 20060218
  Serious: No
  Sender: FDA-Public Use
  Company Number: USA050392913

PATIENT
  Age: 62 Year
  Sex: Female

DRUGS (2)
  1. STRATTERA [Suspect]
     Dosage: 10 MG DAY
     Dates: start: 20050214
  2. ZYPREXA [Suspect]
     Dates: start: 20010101

REACTIONS (3)
  - FATIGUE [None]
  - THERAPEUTIC RESPONSE DECREASED [None]
  - VOMITING [None]
